FAERS Safety Report 7647998-6 (Version None)
Quarter: 2011Q3

REPORT INFORMATION
  Report Type: 
  Country: None (occurrence: None)
  Receive Date: 20110801
  Receipt Date: 20110728
  Transmission Date: 20111222
  Serious: Yes (Life-Threatening, Hospitalization)
  Sender: FDA-Public Use
  Company Number: FR-TEVA-289704ISR

PATIENT
  Sex: Male

DRUGS (5)
  1. AZILECT [Suspect]
     Indication: PARKINSON'S DISEASE
     Dosage: 1 MILLIGRAM;
     Route: 048
     Dates: start: 20100916, end: 20110705
  2. PRAMIPEXOLE DIHYDROCHLORIDE [Concomitant]
     Dosage: 2.1 MILLIGRAM;
     Route: 048
     Dates: start: 20070101
  3. SINEMET [Concomitant]
     Indication: PARKINSON'S DISEASE
     Dosage: 200 MILLIGRAM;
     Route: 048
     Dates: start: 20070101
  4. TRIVASTAL (PIRIBEDIL) [Concomitant]
     Indication: PARKINSON'S DISEASE
     Dosage: 300 MILLIGRAM;
     Route: 048
     Dates: start: 20070101
  5. STALEVO 100 [Concomitant]
     Indication: PARKINSON'S DISEASE
     Dosage: 150MG/37.5MG/200MG * 3/DAY
     Route: 048
     Dates: start: 20090101

REACTIONS (1)
  - SUBDURAL HAEMATOMA [None]
